FAERS Safety Report 13177520 (Version 1)
Quarter: 2017Q1

REPORT INFORMATION
  Report Type: Report from Study
  Country: US (occurrence: US)
  Receive Date: 20170201
  Receipt Date: 20170201
  Transmission Date: 20170428
  Serious: No
  Sender: FDA-Public Use
  Company Number: US-EXELIXIS-CABO-16006456

PATIENT
  Age: 49 Year
  Sex: Male

DRUGS (13)
  1. COMETRIQ [Suspect]
     Active Substance: CABOZANTINIB S-MALATE
     Dosage: 40 MG, QD
     Route: 048
     Dates: start: 201606, end: 20160728
  2. ONDANSETRON [Concomitant]
     Active Substance: ONDANSETRON
  3. CATAPRES [Concomitant]
     Active Substance: CLONIDINE HYDROCHLORIDE
  4. ZOCOR [Concomitant]
     Active Substance: SIMVASTATIN
  5. NORVASC [Concomitant]
     Active Substance: AMLODIPINE BESYLATE
  6. SYNTHROID [Concomitant]
     Active Substance: LEVOTHYROXINE SODIUM
  7. SENNALAX [Concomitant]
  8. LOMOTIL [Concomitant]
     Active Substance: ATROPINE SULFATE\DIPHENOXYLATE HYDROCHLORIDE
  9. COMETRIQ [Suspect]
     Active Substance: CABOZANTINIB S-MALATE
     Dosage: 60 MG, QD
     Route: 048
     Dates: start: 2016, end: 201606
  10. OXYCODONE [Concomitant]
     Active Substance: OXYCODONE
  11. COMETRIQ [Suspect]
     Active Substance: CABOZANTINIB S-MALATE
     Indication: RENAL CANCER
     Dosage: 60 MG, QD
     Route: 048
     Dates: start: 20160401, end: 2016
  12. EMLA [Concomitant]
     Active Substance: LIDOCAINE\PRILOCAINE
  13. PRINIVIL [Concomitant]
     Active Substance: LISINOPRIL

REACTIONS (11)
  - Flank pain [Recovering/Resolving]
  - Pain [Unknown]
  - Night sweats [Unknown]
  - Pain in extremity [Recovering/Resolving]
  - Scan abnormal [Unknown]
  - Memory impairment [Unknown]
  - Blister [Recovered/Resolved]
  - Nausea [Unknown]
  - Fatigue [Unknown]
  - Dysgeusia [Unknown]
  - Off label use [Unknown]

NARRATIVE: CASE EVENT DATE: 201606
